FAERS Safety Report 4675258-4 (Version None)
Quarter: 2005Q2

REPORT INFORMATION
  Report Type: 
  Country: None (occurrence: None)
  Receive Date: 20050527
  Receipt Date: 20050516
  Transmission Date: 20051028
  Serious: Yes (Hospitalization, Other)
  Sender: FDA-Public Use
  Company Number: GB-JNJFOC-20050503886

PATIENT
  Sex: Female
  Weight: 62 kg

DRUGS (10)
  1. REMICADE [Suspect]
     Route: 042
  2. PARACETAMOL [Concomitant]
  3. DOTHIEPIN HYDROCHLORIDE [Concomitant]
  4. HYPROMELLOSE [Concomitant]
  5. DUOVENT [Concomitant]
  6. DUOVENT [Concomitant]
  7. BECLOMETHASONE DIPROPIONATE [Concomitant]
  8. GAVISCON [Concomitant]
  9. GAVISCON [Concomitant]
  10. CALCICHEW [Concomitant]

REACTIONS (3)
  - COLLAPSE OF LUNG [None]
  - PLEURISY [None]
  - PNEUMONIA [None]
